FAERS Safety Report 11852325 (Version 2)
Quarter: 2016Q1

REPORT INFORMATION
  Report Type: Spontaneous
  Country: US (occurrence: US)
  Receive Date: 20151218
  Receipt Date: 20160317
  Transmission Date: 20160526
  Serious: Yes (Hospitalization, Other)
  Sender: FDA-Public Use
  Company Number: US-BAYER-2015-489874

PATIENT
  Age: 89 Year
  Sex: Female
  Weight: 66.21 kg

DRUGS (2)
  1. MIRALAX [Suspect]
     Active Substance: POLYETHYLENE GLYCOL 3350
     Indication: CONSTIPATION
     Route: 048
  2. MILK OF MAGNESIA ORIGINAL [Suspect]
     Active Substance: MAGNESIUM HYDROXIDE
     Indication: CONSTIPATION
     Dosage: UNK
     Route: 048
     Dates: start: 20151023, end: 20151028

REACTIONS (11)
  - Gastrointestinal motility disorder [None]
  - Mobility decreased [None]
  - Drug prescribing error [None]
  - Product use issue [None]
  - Asthenia [None]
  - Muscular weakness [None]
  - Loss of consciousness [None]
  - Underdose [None]
  - Product preparation error [None]
  - Diarrhoea [Not Recovered/Not Resolved]
  - Drug effect delayed [None]

NARRATIVE: CASE EVENT DATE: 20151018
